FAERS Safety Report 14425976 (Version 3)
Quarter: 2018Q2

REPORT INFORMATION
  Report Type: Spontaneous
  Country: BR (occurrence: BR)
  Receive Date: 20180123
  Receipt Date: 20180425
  Transmission Date: 20180711
  Serious: Yes (Hospitalization, Other)
  Sender: FDA-Public Use
  Company Number: BR-PFIZER INC-2018027695

PATIENT
  Age: 87 Year
  Sex: Female

DRUGS (5)
  1. LORAX [Suspect]
     Active Substance: LORAZEPAM
     Dosage: 3MG, DAILY (ONE TABLET OF 2MG AND HALF OF ONE TABLET OF 2MG)
  2. LORAX [Suspect]
     Active Substance: LORAZEPAM
     Indication: DEPRESSION
     Dosage: 2 MG, DAILY
     Dates: start: 1992
  3. PURAN [Concomitant]
     Active Substance: LEVOTHYROXINE SODIUM
     Dosage: UNK
  4. LORAX [Suspect]
     Active Substance: LORAZEPAM
     Dosage: 1 DF, UNK
     Dates: start: 1998
  5. LORAX [Suspect]
     Active Substance: LORAZEPAM
     Dosage: 4 MG, DAILY (USING 2 TABLETS, IN TOTAL 4MG DAY)

REACTIONS (4)
  - Pulmonary embolism [Recovered/Resolved]
  - Drug dependence [Not Recovered/Not Resolved]
  - Sluggishness [Not Recovered/Not Resolved]
  - Insomnia [Not Recovered/Not Resolved]

NARRATIVE: CASE EVENT DATE: 1998
